FAERS Safety Report 6256950-7 (Version None)
Quarter: 2009Q3

REPORT INFORMATION
  Report Type: 
  Country: None (occurrence: None)
  Receive Date: 20090706
  Receipt Date: 20090701
  Transmission Date: 20100115
  Serious: Yes (Death, Life-Threatening, Hospitalization)
  Sender: FDA-Public Use
  Company Number: PHNR2006AU01139

PATIENT
  Sex: Female

DRUGS (8)
  1. CLOZARIL [Suspect]
     Indication: SCHIZOPHRENIA
     Dosage: 400 MG, UNK
     Route: 048
     Dates: start: 20010703
  2. ASPIRIN [Concomitant]
  3. PANTOPRAZOLE SODIUM [Concomitant]
  4. ELOCON [Concomitant]
  5. TIOTROPIUM [Concomitant]
  6. SYMBICORT [Concomitant]
  7. METAMUCIL [Concomitant]
  8. SENOKOT [Concomitant]

REACTIONS (11)
  - AGITATION [None]
  - CHEST PAIN [None]
  - DEATH [None]
  - DELIRIUM [None]
  - DEPRESSED LEVEL OF CONSCIOUSNESS [None]
  - EXTERNAL EAR INFLAMMATION [None]
  - GRAND MAL CONVULSION [None]
  - INFECTION [None]
  - OCULAR ICTERUS [None]
  - PNEUMONIA ASPIRATION [None]
  - SEDATION [None]
